FAERS Safety Report 10159680 (Version 2)
Quarter: 2014Q2

REPORT INFORMATION
  Report Type: Spontaneous
  Country: ES (occurrence: ES)
  Receive Date: 20140508
  Receipt Date: 20140508
  Transmission Date: 20141212
  Serious: Yes (Other)
  Sender: FDA-Public Use
  Company Number: ES-DAIICHI SANKYO INCORPORATION-DSU-2014-00460

PATIENT
  Sex: 0

DRUGS (2)
  1. OPENVAS 40 MG [Suspect]
     Indication: PRODUCT USED FOR UNKNOWN INDICATION
     Dosage: 40 MG, QD
     Route: 048
     Dates: end: 201303
  2. OPENVAS 40 MG [Suspect]
     Dosage: 40 MG, QD
     Route: 048
     Dates: start: 2013, end: 201306

REACTIONS (2)
  - Hepatitis acute [Recovered/Resolved]
  - Contraindication to medical treatment [None]
